FAERS Safety Report 25386452 (Version 2)
Quarter: 2025Q2

REPORT INFORMATION
  Report Type: Report from Study
  Country: US (occurrence: US)
  Receive Date: 20250602
  Receipt Date: 20250613
  Transmission Date: 20250716
  Serious: No
  Sender: ACADIA PHARMACEUTICALS
  Company Number: US-ACADIA PHARMACEUTICALS INC.-ACA-2025-PIM-006436

PATIENT
  Sex: Female

DRUGS (5)
  1. NUPLAZID [Suspect]
     Active Substance: PIMAVANSERIN TARTRATE
     Indication: Parkinson^s disease psychosis
     Dosage: 34 MILLIGRAM, QD
     Route: 048
  2. PEPCID [Concomitant]
     Active Substance: FAMOTIDINE
  3. CALCIUM [Concomitant]
     Active Substance: CALCIUM
  4. GAS RELIEF [Concomitant]
     Active Substance: DIMETHICONE
  5. VITAMINS NOS [Concomitant]
     Active Substance: VITAMINS

REACTIONS (2)
  - Condition aggravated [Recovered/Resolved]
  - Adverse drug reaction [Unknown]
